FAERS Safety Report 4343855-1 (Version None)
Quarter: 2004Q2

REPORT INFORMATION
  Report Type: 
  Country: None (occurrence: None)
  Receive Date: 20040419
  Receipt Date: 20040405
  Transmission Date: 20050107
  Serious: Yes (Hospitalization)
  Sender: FDA-Public Use
  Company Number: 2004CG00672

PATIENT
  Age: 59 Year
  Sex: Female

DRUGS (3)
  1. XYLOCAINE [Suspect]
     Indication: NERVE BLOCK
     Dosage: 50 MG ONCE RNB
     Dates: start: 20040213, end: 20040213
  2. ISMELIN [Suspect]
     Dosage: 20 MG RNB
     Dates: start: 20040213, end: 20040213
  3. EUPRESSYL [Suspect]
     Dates: start: 20040213, end: 20040213

REACTIONS (3)
  - APHASIA [None]
  - MALAISE [None]
  - SYNCOPE VASOVAGAL [None]
